FAERS Safety Report 8224814-5 (Version None)
Quarter: 2012Q1

REPORT INFORMATION
  Report Type: 
  Country: None (occurrence: None)
  Receive Date: 20120321
  Receipt Date: 20120314
  Transmission Date: 20120608
  Serious: Yes (Hospitalization)
  Sender: FDA-Public Use
  Company Number: DK-ROCHE-1049195

PATIENT
  Sex: Female
  Weight: 57 kg

DRUGS (8)
  1. VINCRISTINE [Suspect]
     Indication: DIFFUSE LARGE B-CELL LYMPHOMA
     Dosage: ON DAY 1, CYCLES 1-6. LAST DOSE PRIOR TO SAE: 27/FEB/2012
     Route: 042
     Dates: start: 20120109
  2. FILGRASTIM [Suspect]
     Indication: DIFFUSE LARGE B-CELL LYMPHOMA
     Dosage: ON DAY 2, CYCLES 1-6. LAST DOSE PRIOR TO SAE: 28/FEB/2012
     Route: 058
     Dates: start: 20120110
  3. VENLAFAXINE HCL [Suspect]
     Indication: DEPRESSION
     Route: 048
     Dates: start: 20120105, end: 20120312
  4. CYCLOPHOSPHAMIDE [Suspect]
     Indication: DIFFUSE LARGE B-CELL LYMPHOMA
     Dosage: ON DAY 1, CYCLES 1-6. LAST DOSE PRIOR TO SAE: 27/FEB/2012
     Route: 042
     Dates: start: 20120109
  5. DOXORUBICIN HCL [Suspect]
     Indication: DIFFUSE LARGE B-CELL LYMPHOMA
     Dosage: ON DAY 1, CYCLES 1-6. LAST DOSE PRIOR TO SAE: 27/FEB/2012
     Route: 042
     Dates: start: 20120109
  6. MABTHERA [Suspect]
     Indication: DIFFUSE LARGE B-CELL LYMPHOMA
     Dosage: ON DAY 1: CYCLES 1-5 AND DAY 1, 15, 29: CYCLE 6. LAST DOSE PRIOR TO SAE: 27/FEB/2012
     Route: 042
     Dates: start: 20120109
  7. PREDNISONE TAB [Suspect]
     Indication: DIFFUSE LARGE B-CELL LYMPHOMA
     Dosage: ON DAYS 1-5, CYCLES 1-6. LAST DOSE PRIOR TO SAE: 02/MAR/2012
     Route: 048
     Dates: start: 20120109
  8. MIRTAZAPINE [Suspect]
     Indication: DEPRESSION
     Route: 048
     Dates: start: 20111218, end: 20120311

REACTIONS (1)
  - CONFUSIONAL STATE [None]
